FAERS Safety Report 4316728-8 (Version None)
Quarter: 2004Q1

REPORT INFORMATION
  Report Type: 
  Country: None (occurrence: None)
  Receive Date: 20040311
  Receipt Date: 20040304
  Transmission Date: 20041129
  Serious: Yes (Death)
  Sender: FDA-Public Use
  Company Number: GR-JNJFOC-20040101328

PATIENT
  Age: 41 Year
  Sex: Male
  Weight: 73 kg

DRUGS (6)
  1. REMICADE [Suspect]
     Indication: UVEITIS
     Dosage: 400 MG, INTRAVENOUS
     Route: 042
     Dates: start: 20031217, end: 20040105
  2. MEDROL [Concomitant]
  3. DIAMOX (ACETAZOLAMIDE) TABLETS [Concomitant]
  4. TIMOLOL MALEATE [Concomitant]
  5. XALATAN [Concomitant]
  6. ALPHAGAN [Concomitant]

REACTIONS (3)
  - ABDOMINAL PAIN UPPER [None]
  - INTESTINAL OBSTRUCTION [None]
  - WHITE BLOOD CELL COUNT INCREASED [None]
